FAERS Safety Report 15015480 (Version 1)
Quarter: 2018Q2

REPORT INFORMATION
  Report Type: Spontaneous
  Country: DE (occurrence: DE)
  Receive Date: 20180615
  Receipt Date: 20180615
  Transmission Date: 20180711
  Serious: Yes (Life-Threatening, Hospitalization, Other)
  Sender: FDA-Public Use
  Company Number: DE-BRISTOL-MYERS SQUIBB COMPANY-BMS-2018-047075

PATIENT
  Age: 80 Year
  Sex: Female
  Weight: 48 kg

DRUGS (1)
  1. ELIQUIS [Suspect]
     Active Substance: APIXABAN
     Indication: PERIPHERAL ARTERY OCCLUSION
     Dosage: 2.5 MG, BID
     Route: 065
     Dates: start: 20170912

REACTIONS (2)
  - Peripheral artery occlusion [Recovering/Resolving]
  - Product use in unapproved indication [Unknown]

NARRATIVE: CASE EVENT DATE: 20170928
